FAERS Safety Report 8977546 (Version 2)
Quarter: 2013Q1

REPORT INFORMATION
  Report Type: Spontaneous
  Country: DE (occurrence: DE)
  Receive Date: 20121220
  Receipt Date: 20130124
  Transmission Date: 20140127
  Serious: Yes (Hospitalization, Other)
  Sender: FDA-Public Use
  Company Number: DE-ELI_LILLY_AND_COMPANY-DE201212002453

PATIENT
  Sex: Female

DRUGS (7)
  1. FORSTEO [Suspect]
     Indication: OSTEOPOROSIS
     Dosage: UNK, QD
     Route: 058
     Dates: start: 20121026
  2. L-THYROX [Concomitant]
  3. RAMIPRIL [Concomitant]
  4. SIMVASTATIN [Concomitant]
  5. MARCUMAR [Concomitant]
  6. BISOPROLOL [Concomitant]
     Dosage: UNK, UNKNOWN
     Route: 065
  7. ASS [Concomitant]
     Dosage: UNK, UNKNOWN
     Route: 065

REACTIONS (11)
  - Sternal fracture [Not Recovered/Not Resolved]
  - Arrhythmia [Unknown]
  - Renal impairment [Recovering/Resolving]
  - Heart rate increased [Recovered/Resolved]
  - Respiratory disorder [Unknown]
  - Lung disorder [Unknown]
  - Headache [Unknown]
  - Intentional drug misuse [Unknown]
  - Angina pectoris [Unknown]
  - Pneumonia [Unknown]
  - Chest discomfort [Unknown]
